FAERS Safety Report 9288421 (Version 1)
Quarter: 2013Q2

REPORT INFORMATION
  Report Type: Spontaneous
  Country: US (occurrence: None)
  Receive Date: 20130513
  Receipt Date: 20130513
  Transmission Date: 20140414
  Serious: Yes (Hospitalization)
  Sender: FDA-Public Use
  Company Number: None

PATIENT
  Age: 2 Month
  Sex: Male

DRUGS (2)
  1. NEUTRA-PHOS [Suspect]
     Route: 048
     Dates: start: 20130430
  2. CALCIUM GLUBIONATE [Suspect]
     Dosage: 58 MG TID.PO.
     Dates: start: 20130430, end: 20130503

REACTIONS (3)
  - Diarrhoea [None]
  - Food intolerance [None]
  - Product contamination [None]
